FAERS Safety Report 23201168 (Version 3)
Quarter: 2024Q1

REPORT INFORMATION
  Report Type: Spontaneous
  Country: LT (occurrence: LT)
  Receive Date: 20231118
  Receipt Date: 20240223
  Transmission Date: 20240410
  Serious: Yes (Hospitalization)
  Sender: FDA-Public Use
  Company Number: None

PATIENT
  Age: 56 Year
  Sex: Male
  Weight: 130 kg

DRUGS (7)
  1. METFORMIN [Suspect]
     Active Substance: METFORMIN HYDROCHLORIDE
     Indication: Type 2 diabetes mellitus
     Route: 048
     Dates: start: 20230829, end: 20231007
  2. DAPAGLIFLOZIN [Concomitant]
     Active Substance: DAPAGLIFLOZIN
     Indication: Type 2 diabetes mellitus
     Route: 048
     Dates: start: 20230905, end: 20231007
  3. BISOPROLOL [Concomitant]
     Active Substance: BISOPROLOL\BISOPROLOL FUMARATE
     Indication: Tachycardia
     Route: 048
     Dates: start: 20230905, end: 20231007
  4. Amlodipine/Valsartan/Hydrochloorthiazide Teva [Concomitant]
     Indication: Essential hypertension
     Dosage: 10 MG/160 MG/25 MG
     Route: 048
     Dates: start: 20230905, end: 20231007
  5. GLICLAZIDE [Concomitant]
     Active Substance: GLICLAZIDE
     Indication: Type 2 diabetes mellitus
     Route: 048
     Dates: start: 20230905, end: 20231007
  6. LEVOTHYROXINE [Concomitant]
     Active Substance: LEVOTHYROXINE\LEVOTHYROXINE SODIUM
     Indication: Hypothyroidism
     Route: 048
     Dates: start: 20221222, end: 20231007
  7. LANTUS [Concomitant]
     Active Substance: INSULIN GLARGINE
     Indication: Diabetic metabolic decompensation
     Dosage: 100 U/ML
     Route: 058
     Dates: start: 20230828, end: 20231007

REACTIONS (12)
  - Lactic acidosis [Recovering/Resolving]
  - Alcohol interaction [Recovering/Resolving]
  - Bradycardia [Recovering/Resolving]
  - Chronic kidney disease [Recovering/Resolving]
  - Hyperkalaemia [Recovering/Resolving]
  - Diabetic ketoacidosis [Recovering/Resolving]
  - Metabolic acidosis [Recovering/Resolving]
  - Arrhythmia supraventricular [Recovering/Resolving]
  - Uraemia odour [Recovering/Resolving]
  - Acute kidney injury [Recovering/Resolving]
  - Oliguria [Recovering/Resolving]
  - Respiratory failure [Recovering/Resolving]

NARRATIVE: CASE EVENT DATE: 20231007
